FAERS Safety Report 11320221 (Version 1)
Quarter: 2015Q3

REPORT INFORMATION
  Report Type: Spontaneous
  Country: US (occurrence: None)
  Receive Date: 20150728
  Receipt Date: 20150728
  Transmission Date: 20151125
  Serious: No
  Sender: FDA-Public Use
  Company Number: None

PATIENT
  Age: 65 Year
  Sex: Female
  Weight: 58.97 kg

DRUGS (4)
  1. IBANDRONATE [Suspect]
     Active Substance: IBANDRONATE SODIUM
     Indication: OSTEOPOROSIS
     Dosage: 1 1/MOS TAKEN BY MOUTH
     Route: 048
     Dates: end: 20150523
  2. D3 [Concomitant]
     Active Substance: 25-HYDROXYCHOLECALCIFEROL, 5-TRANS-
  3. ONE A DAY WOMENS VITACRAVES GUMMIES [Concomitant]
     Active Substance: VITAMINS
  4. CALTRATE [Concomitant]
     Active Substance: CALCIUM CARBONATE

REACTIONS (6)
  - Headache [None]
  - Anxiety [None]
  - Dizziness [None]
  - Urticaria [None]
  - Stress [None]
  - Myalgia [None]
